FAERS Safety Report 9336510 (Version 2)
Quarter: 2013Q2

REPORT INFORMATION
  Report Type: Spontaneous
  Country: US (occurrence: US)
  Receive Date: 20130607
  Receipt Date: 20130612
  Transmission Date: 20140414
  Serious: No
  Sender: FDA-Public Use
  Company Number: US-PFIZER INC-2013170266

PATIENT
  Age: 64 Year
  Sex: Male

DRUGS (1)
  1. INLYTA [Suspect]
     Dosage: 3 MG, 2X/DAY (3 TABLETS OF 1 MG TWICE A DAY)
     Dates: start: 20130227

REACTIONS (2)
  - Diarrhoea [Unknown]
  - Nausea [Unknown]
